FAERS Safety Report 9928445 (Version 16)
Quarter: 2018Q3

REPORT INFORMATION
  Report Type: Report from Study
  Country: FR (occurrence: FR)
  Receive Date: 20140227
  Receipt Date: 20180724
  Transmission Date: 20181010
  Serious: Yes (Hospitalization)
  Sender: FDA-Public Use
  Company Number: FR-ROCHE-1335286

PATIENT
  Age: 78 Year
  Sex: Female

DRUGS (38)
  1. SERETIDE [Concomitant]
     Active Substance: FLUTICASONE PROPIONATE\SALMETEROL XINAFOATE
     Route: 065
     Dates: start: 201104
  2. DIFFU K [Concomitant]
     Active Substance: POTASSIUM CHLORIDE
     Route: 065
     Dates: start: 20140109
  3. ECONAZOLE [Concomitant]
     Active Substance: ECONAZOLE
     Dosage: 3 APPLICATIONS
     Route: 065
     Dates: start: 20140128
  4. TRASTUZUMAB. [Suspect]
     Active Substance: TRASTUZUMAB
     Indication: HER-2 POSITIVE BREAST CANCER
     Dosage: LOADING DOSE: 660MG
     Route: 042
     Dates: start: 20131204
  5. LERCAN [Concomitant]
     Active Substance: LERCANIDIPINE
     Route: 065
     Dates: start: 2000
  6. DAFALGAN [Concomitant]
     Active Substance: ACETAMINOPHEN
     Route: 065
     Dates: start: 2000
  7. PRIMPERAN [Concomitant]
     Active Substance: METOCLOPRAMIDE HYDROCHLORIDE
     Route: 065
     Dates: start: 20140122, end: 20140214
  8. ALPRAZOLAM. [Concomitant]
     Active Substance: ALPRAZOLAM
     Indication: PROPHYLAXIS
     Route: 065
     Dates: start: 20140122, end: 20140214
  9. BACTRIM [Concomitant]
     Active Substance: SULFAMETHOXAZOLE\TRIMETHOPRIM
     Indication: PRODUCT USED FOR UNKNOWN INDICATION
     Route: 065
  10. METFORMIN [Concomitant]
     Active Substance: METFORMIN HYDROCHLORIDE
     Route: 065
     Dates: start: 2014
  11. NOVONORM [Concomitant]
     Active Substance: REPAGLINIDE
     Route: 065
     Dates: start: 2000
  12. INEGY [Concomitant]
     Active Substance: EZETIMIBE\SIMVASTATIN
     Route: 065
     Dates: start: 200012
  13. SERETIDE [Concomitant]
     Active Substance: FLUTICASONE PROPIONATE\SALMETEROL XINAFOATE
     Route: 065
     Dates: start: 200004
  14. EUPRESSYL [Concomitant]
     Active Substance: URAPIDIL
     Route: 065
     Dates: start: 2014
  15. DIFFU K [Concomitant]
     Active Substance: POTASSIUM CHLORIDE
     Route: 065
     Dates: start: 20140109
  16. FUNGIZONE [Concomitant]
     Active Substance: AMPHOTERICIN B
     Dosage: 3 SPOONS
     Route: 065
     Dates: start: 20140109
  17. STILNOX [Concomitant]
     Active Substance: ZOLPIDEM TARTRATE
     Indication: INSOMNIA
     Route: 065
     Dates: start: 20140109, end: 20140214
  18. IMOVANE [Concomitant]
     Active Substance: ZOPICLONE
     Route: 065
     Dates: start: 2014
  19. PERTUZUMAB. [Suspect]
     Active Substance: PERTUZUMAB
     Indication: HER-2 POSITIVE BREAST CANCER
     Dosage: LODING DOSE
     Route: 042
     Dates: start: 20131204
  20. PERTUZUMAB. [Suspect]
     Active Substance: PERTUZUMAB
     Dosage: MAINTENENCE DOSE?PERMANENTLY DISCONTINUED ON 27/DEC/2013
     Route: 042
     Dates: start: 20131227, end: 20131227
  21. UVEDOSE [Concomitant]
     Active Substance: CHOLECALCIFEROL
     Indication: VITAMIN D DEFICIENCY
     Route: 065
     Dates: start: 20140109
  22. DOCETAXEL. [Suspect]
     Active Substance: DOCETAXEL
     Indication: HER-2 POSITIVE BREAST CANCER
     Dosage: PERMANENTLY DISCONTINUED ON 27/DEC/2013
     Route: 042
     Dates: start: 20131204, end: 20131227
  23. TRASTUZUMAB. [Suspect]
     Active Substance: TRASTUZUMAB
     Dosage: MAINTAINENCE DOSE (493 MG)?PERMANENTLY DISCONTINUED ON 27/DEC/2013.
     Route: 042
     Dates: start: 20131227, end: 20131227
  24. METFORMIN [Concomitant]
     Active Substance: METFORMIN HYDROCHLORIDE
     Route: 065
     Dates: start: 20140109
  25. ULTRA?LEVURE [Concomitant]
     Active Substance: SACCHAROMYCES CEREVISIAE
     Dosage: AS REQUIRED
     Route: 065
     Dates: start: 20140104
  26. INNOHEP [Concomitant]
     Active Substance: TINZAPARIN SODIUM
     Route: 065
     Dates: start: 2014
  27. JANUMET [Concomitant]
     Active Substance: METFORMIN HYDROCHLORIDE\SITAGLIPTIN PHOSPHATE
     Route: 065
     Dates: start: 200012
  28. EUPRESSYL [Concomitant]
     Active Substance: URAPIDIL
     Route: 065
     Dates: start: 20140109
  29. INEXIUM [Concomitant]
     Active Substance: ESOMEPRAZOLE
     Route: 065
     Dates: start: 20140109
  30. LOVENOX [Concomitant]
     Active Substance: ENOXAPARIN SODIUM
     Route: 065
     Dates: start: 20140109, end: 20140214
  31. BECOTIDE [Concomitant]
     Active Substance: BECLOMETHASONE DIPROPIONATE
     Route: 065
     Dates: start: 20140109
  32. INEXIUM [Concomitant]
     Active Substance: ESOMEPRAZOLE
     Route: 065
     Dates: start: 2014
  33. INNOHEP [Concomitant]
     Active Substance: TINZAPARIN SODIUM
     Indication: PROPHYLAXIS
     Dosage: 14 000 UI/0.7ML
     Route: 065
     Dates: start: 20140206
  34. MIDAZOLAM MALEATE [Concomitant]
     Active Substance: MIDAZOLAM MALEATE
     Route: 065
     Dates: start: 20140129, end: 20140129
  35. NORMACOL [Concomitant]
     Active Substance: HERBALS\KARAYA GUM
     Dosage: ONCE
     Route: 054
     Dates: start: 20140129, end: 20140129
  36. RHINOTROPHYL [Concomitant]
     Active Substance: FRAMYCETIN\MONOETHANOLAMINE
     Dosage: 4 PULVERISATION
     Route: 065
     Dates: start: 2014
  37. ESOMEPRAZOLE [Concomitant]
     Active Substance: ESOMEPRAZOLE
     Route: 065
     Dates: start: 2000
  38. DOMPERIDONE [Concomitant]
     Active Substance: DOMPERIDONE
     Route: 065
     Dates: start: 20140109

REACTIONS (4)
  - Diarrhoea [Recovered/Resolved]
  - Diarrhoea [Recovered/Resolved]
  - Pyrexia [Recovered/Resolved]
  - General physical health deterioration [Recovered/Resolved]

NARRATIVE: CASE EVENT DATE: 20131228
